FAERS Safety Report 6657566-0 (Version None)
Quarter: 2010Q1

REPORT INFORMATION
  Report Type: 
  Country: None (occurrence: None)
  Receive Date: 20100326
  Receipt Date: 20100326
  Transmission Date: 20100710
  Serious: Yes (Other)
  Sender: FDA-Public Use
  Company Number: UK_TT_09_00002

PATIENT
  Sex: Male

DRUGS (12)
  1. DEXRAZOXANE [Suspect]
  2. CAELYX [Concomitant]
  3. CYCLOPHOSPHAMIDE [Concomitant]
  4. CYTARABINE [Concomitant]
  5. DOXORUBICIN HCL [Concomitant]
  6. ETOPOSIDE [Concomitant]
  7. METHOTREXATE [Concomitant]
  8. PREDNISOLONE [Concomitant]
  9. RITUXIMAB [Concomitant]
  10. TACROLIMUS [Concomitant]
  11. THIOGUANINE [Concomitant]
  12. VINCRISTINE [Concomitant]

REACTIONS (11)
  - BACTERIAL SEPSIS [None]
  - DEVICE RELATED INFECTION [None]
  - EPSTEIN-BARR VIRAEMIA [None]
  - HEART TRANSPLANT [None]
  - LYMPHOPROLIFERATIVE DISORDER [None]
  - MUSCLE CONTRACTIONS INVOLUNTARY [None]
  - PNEUMOCYSTIS JIROVECI PNEUMONIA [None]
  - PNEUMONITIS [None]
  - RENAL FAILURE [None]
  - STAPHYLOCOCCAL BACTERAEMIA [None]
  - TIC [None]
